FAERS Safety Report 5215905-1 (Version None)
Quarter: 2007Q1

REPORT INFORMATION
  Report Type: 
  Country: None (occurrence: None)
  Receive Date: 20070123
  Receipt Date: 20070112
  Transmission Date: 20070707
  Serious: Yes (Hospitalization, Disabling)
  Sender: FDA-Public Use
  Company Number: CH-MERCK-0701CHE00008

PATIENT
  Age: 55 Year
  Sex: Female

DRUGS (12)
  1. FOSAMAX [Suspect]
     Indication: OSTEOPOROSIS
     Route: 048
  2. BACLOFEN [Suspect]
     Indication: PARAPLEGIA
     Route: 048
     Dates: start: 20030101
  3. IMIPRAMINE HYDROCHLORIDE [Suspect]
     Indication: PARAPLEGIA
     Route: 048
  4. PIPAMPERONE HYDROCHLORIDE [Suspect]
     Indication: SLEEP DISORDER
     Route: 048
     Dates: end: 20060925
  5. METHADONE HYDROCHLORIDE [Suspect]
     Indication: MENTAL DISORDER
     Route: 048
  6. METHADONE HYDROCHLORIDE [Suspect]
     Indication: ABNORMAL BEHAVIOUR
     Route: 048
  7. TOLPERISONE HYDROCHLORIDE [Interacting]
     Indication: PARAPLEGIA
     Route: 048
     Dates: end: 20060925
  8. NIFEDIPINE [Interacting]
     Route: 065
  9. ZOLPIDEM TARTRATE [Concomitant]
     Indication: SLEEP DISORDER
     Route: 048
     Dates: end: 20060925
  10. DIPYRONE [Concomitant]
     Indication: PARAPLEGIA
     Route: 048
     Dates: end: 20060925
  11. IBUPROFEN [Concomitant]
     Indication: PARAPLEGIA
     Route: 048
     Dates: end: 20060925
  12. ESOMEPRAZOLE MAGNESIUM [Concomitant]
     Route: 048

REACTIONS (3)
  - DRUG INTERACTION [None]
  - GRAND MAL CONVULSION [None]
  - MUSCLE SPASTICITY [None]
